FAERS Safety Report 21308149 (Version 1)
Quarter: 2022Q3

REPORT INFORMATION
  Report Type: Report from Study
  Country: ZA (occurrence: ZA)
  Receive Date: 20220908
  Receipt Date: 20220908
  Transmission Date: 20221026
  Serious: Yes (Other)
  Sender: FDA-Public Use
  Company Number: ZA-PFIZER INC-PV202200056372

PATIENT
  Weight: 3.9 kg

DRUGS (2)
  1. MISOPROSTOL [Suspect]
     Active Substance: MISOPROSTOL
     Indication: Gestational hypertension
     Dosage: UNK
     Route: 064
  2. MISOPROSTOL [Suspect]
     Active Substance: MISOPROSTOL
     Indication: Induced labour

REACTIONS (3)
  - Foetal exposure during delivery [Unknown]
  - Shoulder dystocia [Unknown]
  - Hypoxic ischaemic encephalopathy neonatal [Unknown]
